FAERS Safety Report 8154355-5 (Version None)
Quarter: 2012Q1

REPORT INFORMATION
  Report Type: 
  Country: None (occurrence: None)
  Receive Date: 20120221
  Receipt Date: 20120215
  Transmission Date: 20120608
  Serious: No
  Sender: FDA-Public Use
  Company Number: US-PFIZER INC-2012041691

PATIENT
  Sex: Female
  Weight: 77.098 kg

DRUGS (1)
  1. NICOTROL [Suspect]
     Indication: CHRONIC OBSTRUCTIVE PULMONARY DISEASE
     Dosage: UNK, AS NEEDED
     Route: 055
     Dates: start: 20120101, end: 20120101

REACTIONS (1)
  - DRUG INTOLERANCE [None]
